FAERS Safety Report 20005560 (Version 1)
Quarter: 2021Q4

REPORT INFORMATION
  Report Type: Report from Study
  Country: HN (occurrence: HN)
  Receive Date: 20211028
  Receipt Date: 20211028
  Transmission Date: 20220303
  Serious: Yes (Hospitalization)
  Sender: FDA-Public Use
  Company Number: HN-NOVARTISPH-NVSC2021HN244293

PATIENT
  Age: 89 Year
  Sex: Female

DRUGS (1)
  1. EXFORGE HCT [Suspect]
     Active Substance: AMLODIPINE BESYLATE\HYDROCHLOROTHIAZIDE\VALSARTAN
     Indication: Product used for unknown indication
     Dosage: 1 DF (APPROXIMATELY 2 YEARS AGO)
     Route: 065

REACTIONS (2)
  - Malaise [Unknown]
  - Disease recurrence [Unknown]
